FAERS Safety Report 7125096-8 (Version None)
Quarter: 2010Q4

REPORT INFORMATION
  Report Type: 
  Country: None (occurrence: None)
  Receive Date: 20101129
  Receipt Date: 20101018
  Transmission Date: 20110411
  Serious: Yes (Hospitalization)
  Sender: FDA-Public Use
  Company Number: US-AMGEN-TCS430471

PATIENT

DRUGS (9)
  1. ENBREL [Suspect]
     Indication: RHEUMATOID ARTHRITIS
     Dosage: 50 MG, QWK
     Route: 058
     Dates: start: 20080901, end: 20100807
  2. IMURAN [Suspect]
     Indication: RHEUMATOID ARTHRITIS
     Dosage: 100 MG, QD
     Route: 048
  3. PREDNISONE [Suspect]
     Indication: RHEUMATOID ARTHRITIS
     Dosage: 10 MG, QD
     Route: 048
  4. ALENDRONATE SODIUM [Concomitant]
     Indication: OSTEOPOROSIS
     Dosage: 70 MG, QWK
     Route: 048
  5. LORCET-HD [Concomitant]
     Dosage: 1 UNK, UNK
  6. PRAVASTATIN [Concomitant]
     Dosage: 40 MG, QD
     Route: 048
  7. RESTORIL [Concomitant]
     Dosage: 30 MG, QHS
     Route: 048
  8. CALCIUM+VIT D                      /00944201/ [Concomitant]
     Dosage: 500 MG, BID
  9. LACTOBACILLUS [Concomitant]
     Dosage: UNK UNK, QD
     Route: 048

REACTIONS (8)
  - ABDOMINAL PAIN [None]
  - ARTHROPATHY [None]
  - DIVERTICULITIS [None]
  - DYSPEPSIA [None]
  - HYPERTENSION [None]
  - LEUKOCYTOSIS [None]
  - NAUSEA [None]
  - VOMITING [None]
